FAERS Safety Report 10039724 (Version 1)
Quarter: 2014Q1

REPORT INFORMATION
  Report Type: Spontaneous
  Country: BR (occurrence: BR)
  Receive Date: 20140326
  Receipt Date: 20140326
  Transmission Date: 20141002
  Serious: Yes (Other)
  Sender: FDA-Public Use
  Company Number: BR-PFIZER INC-2014081986

PATIENT
  Age: 50 Year
  Sex: Female
  Weight: 71 kg

DRUGS (4)
  1. LYRICA [Suspect]
     Indication: NEUROPATHY PERIPHERAL
     Dosage: 1 TABLET OF 75 MG, 2X/DAY (AT 06:00 IN THE MORNING AND 18:00H)
     Route: 048
     Dates: start: 20140104
  2. ETNA [Suspect]
     Indication: PAIN
     Dosage: 1 TABLET 6X/DAY
     Dates: start: 20140104
  3. CODEINE PHOSPHATE/PARACETAMOL [Concomitant]
     Indication: PAIN
     Dosage: 1 AT NIGHT
     Dates: start: 201402
  4. VITAMIN B1 [Concomitant]
     Dosage: 1 DAILY
     Dates: start: 201401

REACTIONS (11)
  - Suicidal ideation [Unknown]
  - Joint injury [Unknown]
  - Dizziness [Unknown]
  - Fear [Unknown]
  - Apathy [Unknown]
  - Formication [Unknown]
  - Peripheral coldness [Unknown]
  - Hypoaesthesia [Unknown]
  - Pain [Unknown]
  - Crying [Unknown]
  - Insomnia [Unknown]
